FAERS Safety Report 23101038 (Version 1)
Quarter: 2023Q4

REPORT INFORMATION
  Report Type: Spontaneous
  Country: US (occurrence: None)
  Receive Date: 20231021
  Receipt Date: 20231021
  Transmission Date: 20240110
  Serious: Yes (Hospitalization)
  Sender: FDA-Public Use
  Company Number: None

PATIENT
  Age: 68 Year
  Sex: Male
  Weight: 128 kg

DRUGS (1)
  1. TERBINAFINE HYDROCHLORIDE [Suspect]
     Active Substance: TERBINAFINE HYDROCHLORIDE
     Dosage: FREQUENCY : TWICE A DAY;?
     Dates: start: 20221114, end: 20230223

REACTIONS (6)
  - Thrombocytopenia [None]
  - Thrombotic thrombocytopenic purpura [None]
  - Skin ulcer [None]
  - Malaise [None]
  - Anaemia [None]
  - Therapy cessation [None]

NARRATIVE: CASE EVENT DATE: 20230216
